FAERS Safety Report 7520941-6 (Version None)
Quarter: 2011Q2

REPORT INFORMATION
  Report Type: 
  Country: None (occurrence: None)
  Receive Date: 20110603
  Receipt Date: 20101201
  Transmission Date: 20111010
  Serious: Yes (Other)
  Sender: FDA-Public Use
  Company Number: US-BAYER-2010-003168

PATIENT
  Age: 24 Year
  Sex: Female
  Weight: 112.9 kg

DRUGS (4)
  1. ALESSE [Suspect]
  2. MAGNEVIST [Suspect]
     Indication: ANGIOGRAM
  3. PAXIL [Concomitant]
  4. MAGNEVIST [Suspect]
     Indication: NUCLEAR MAGNETIC RESONANCE IMAGING BRAIN
     Dosage: 20 ML, ONCE
     Route: 042
     Dates: start: 20101130, end: 20101130

REACTIONS (3)
  - COUGH [None]
  - HYPERSENSITIVITY [None]
  - DYSPHAGIA [None]
